FAERS Safety Report 20565215 (Version 1)
Quarter: 2022Q1

REPORT INFORMATION
  Report Type: Report from Study
  Country: CA (occurrence: CA)
  Receive Date: 20220308
  Receipt Date: 20220308
  Transmission Date: 20220424
  Serious: Yes (Other)
  Sender: FDA-Public Use
  Company Number: CA-JNJFOC-20210314712

PATIENT
  Age: 29 Year
  Sex: Female

DRUGS (1)
  1. REMICADE [Suspect]
     Active Substance: INFLIXIMAB
     Indication: Crohn^s disease
     Dosage: ON 28-MAY-2021, THE PATIENT RECEIVED 105TH INFLIXIMAB INFUSION FOR DOSE OF 300 MG, 1 EVERY 6 WEEKS.
     Route: 042
     Dates: start: 20101018

REACTIONS (5)
  - Haemorrhage in pregnancy [Unknown]
  - Exposure during pregnancy [Recovered/Resolved]
  - Muscle spasms [Unknown]
  - COVID-19 [Recovering/Resolving]
  - Inappropriate schedule of product administration [Unknown]

NARRATIVE: CASE EVENT DATE: 20210101
